FAERS Safety Report 6855827-3 (Version None)
Quarter: 2010Q3

REPORT INFORMATION
  Report Type: 
  Country: None (occurrence: None)
  Receive Date: 20100715
  Receipt Date: 20100715
  Transmission Date: 20110219
  Serious: Yes (Life-Threatening)
  Sender: FDA-Public Use
  Company Number: None

PATIENT
  Age: 50 Year
  Sex: Female
  Weight: 66.2252 kg

DRUGS (2)
  1. FENTANYL [Suspect]
     Indication: RHEUMATOID ARTHRITIS
     Dosage: 50MCG 72 TOPICAL
     Route: 061
     Dates: start: 20100504
  2. FENTANYL [Suspect]
     Indication: SYSTEMIC LUPUS ERYTHEMATOSUS
     Dosage: 50MCG 72 TOPICAL
     Route: 061
     Dates: start: 20100504

REACTIONS (6)
  - COUGH [None]
  - ERYTHEMA [None]
  - PRODUCT LABEL ISSUE [None]
  - PRURITUS [None]
  - RESPIRATORY DISORDER [None]
  - URTICARIA [None]
